FAERS Safety Report 19894771 (Version 1)
Quarter: 2021Q3

REPORT INFORMATION
  Report Type: Report from Study
  Country: CA (occurrence: CA)
  Receive Date: 20210929
  Receipt Date: 20210929
  Transmission Date: 20211014
  Serious: Yes (Hospitalization, Other)
  Sender: FDA-Public Use
  Company Number: CA-ORION CORPORATION ORION PHARMA-21_00015970

PATIENT
  Age: 49 Year
  Sex: Female

DRUGS (7)
  1. NEORAL [Suspect]
     Active Substance: CYCLOSPORINE
     Indication: PRODUCT USED FOR UNKNOWN INDICATION
     Route: 065
  2. CELECOXIB. [Concomitant]
     Active Substance: CELECOXIB
     Route: 065
  3. OTEZLA [Concomitant]
     Active Substance: APREMILAST
     Route: 065
  4. DEXILANT [Concomitant]
     Active Substance: DEXLANSOPRAZOLE
     Route: 065
  5. SORIATANE [Concomitant]
     Active Substance: ACITRETIN
     Route: 065
  6. ACITRETIN. [Concomitant]
     Active Substance: ACITRETIN
     Route: 065
  7. METHOTREXATE (TRADE NAME UNKNOWN) [Suspect]
     Active Substance: METHOTREXATE
     Indication: PRODUCT USED FOR UNKNOWN INDICATION
     Route: 065

REACTIONS (10)
  - Agitation [Recovered/Resolved]
  - Osteoporosis [Recovered/Resolved]
  - Palmoplantar pustulosis [Recovered/Resolved]
  - Gastric ulcer [Recovered/Resolved]
  - Pneumonia [Recovered/Resolved]
  - Fatigue [Recovered/Resolved]
  - Headache [Recovered/Resolved]
  - Pain [Recovered/Resolved]
  - Drug ineffective [Recovered/Resolved]
  - Drug intolerance [Recovered/Resolved]
